FAERS Safety Report 18856955 (Version 3)
Quarter: 2022Q3

REPORT INFORMATION
  Report Type: Other
  Country: US (occurrence: None)
  Receive Date: 20210208
  Receipt Date: 20220828
  Transmission Date: 20221026
  Serious: Yes (Other)
  Sender: FDA-Public Use
  Company Number: US-ROCHE-2742987

PATIENT
  Sex: Male

DRUGS (1)
  1. CELLCEPT [Suspect]
     Active Substance: MYCOPHENOLATE MOFETIL
     Indication: Liver transplant
     Route: 048

REACTIONS (4)
  - Encephalopathy [Unknown]
  - Cognitive disorder [Unknown]
  - Malaise [Unknown]
  - Off label use [Unknown]
